FAERS Safety Report 8068050-4 (Version None)
Quarter: 2012Q1

REPORT INFORMATION
  Report Type: 
  Country: None (occurrence: None)
  Receive Date: 20120124
  Receipt Date: 20110923
  Transmission Date: 20120608
  Serious: No
  Sender: FDA-Public Use
  Company Number: US-AMGEN-USASP2011049563

PATIENT
  Sex: Female

DRUGS (11)
  1. SIMVASTATIN [Concomitant]
     Dosage: UNK
  2. CODEINE SUL TAB [Concomitant]
     Indication: PAIN
     Dosage: UNK
  3. FLUOXETINE [Concomitant]
  4. PROLIA [Suspect]
     Indication: OSTEOPOROSIS POSTMENOPAUSAL
     Dosage: 60 MG, Q6MO
     Dates: start: 20101101
  5. CYCLOBENZAPRINE [Concomitant]
     Dosage: 10 MG, QD
  6. LORAZEPAM [Concomitant]
     Dosage: 1 MG, QD
  7. VIVELLE-DOT [Concomitant]
     Dosage: UNK
  8. ELMIRON [Concomitant]
     Dosage: 1 MG, QD
  9. CALCIUM [Concomitant]
     Dosage: UNK
  10. VITAMIN D [Concomitant]
  11. PROGESTERONE [Concomitant]
     Dosage: UNK

REACTIONS (4)
  - INJECTION SITE PAIN [None]
  - NERVE ROOT COMPRESSION [None]
  - PAIN [None]
  - MUSCULOSKELETAL PAIN [None]
